FAERS Safety Report 7482288-6 (Version None)
Quarter: 2011Q2

REPORT INFORMATION
  Report Type: 
  Country: None (occurrence: None)
  Receive Date: 20110516
  Receipt Date: 20110510
  Transmission Date: 20111010
  Serious: Yes (Other)
  Sender: FDA-Public Use
  Company Number: CA-PFIZER INC-2011077327

PATIENT
  Age: 57 Year
  Sex: Female

DRUGS (14)
  1. CALCIUM WITH VITAMIN D [Concomitant]
     Dosage: 500/400,
  2. RABEPRAZOLE SODIUM [Concomitant]
     Indication: GASTROINTESTINAL DISORDER
     Dosage: DAILY; AM
     Dates: start: 20110315
  3. LYRICA [Suspect]
     Indication: NEURALGIA
     Dosage: 50 MG, 2X/DAY
     Route: 048
     Dates: start: 20110208, end: 20110201
  4. LYRICA [Suspect]
     Dosage: 75 MG, 2X/DAY
     Route: 048
     Dates: start: 20110201
  5. NITROGLYCERIN SPRAY [Concomitant]
     Dosage: UNK
  6. SALBUTAMOL [Concomitant]
     Dosage: UNK
  7. LIPITOR [Concomitant]
     Indication: BLOOD CHOLESTEROL
     Dosage: 40 MG, 1X/DAY AT BEDTIME
     Dates: start: 20110315
  8. CELEBREX [Concomitant]
     Dosage: 200 MG, 1X/DAY
  9. ATENOLOL [Concomitant]
     Indication: BLOOD PRESSURE
     Dosage: 50 MG, 1X/DAY IN THE MORNING
     Dates: start: 20110315
  10. AMITRIPTYLINE [Concomitant]
     Dosage: 75 MG, 1X/DAY, BEDTIME
  11. COZAAR [Concomitant]
     Indication: BLOOD PRESSURE
     Dosage: 100 MG, 1X/DAY AM
     Dates: start: 20110315
  12. METFORMIN HYDROCHLORIDE [Concomitant]
     Indication: DIABETES MELLITUS
     Dosage: 850 MG, 3X/DAY
     Dates: start: 20110315
  13. ASPIRIN [Concomitant]
     Dosage: 80 MG, UNK
  14. FLOVENT [Concomitant]
     Dosage: UNK
     Route: 055

REACTIONS (1)
  - HYPERGLYCAEMIA [None]
